FAERS Safety Report 5106873-1 (Version None)
Quarter: 2006Q3

REPORT INFORMATION
  Report Type: 
  Country: None (occurrence: None)
  Receive Date: 20060913
  Receipt Date: 20060904
  Transmission Date: 20061208
  Serious: Yes (Other)
  Sender: FDA-Public Use
  Company Number: 112426ISR

PATIENT
  Age: 4 Year
  Sex: Female

DRUGS (3)
  1. TRIMETHOPRIM [Suspect]
     Indication: INFECTION
     Dosage: 10 ML; ORAL
     Route: 048
     Dates: start: 20060405, end: 20060408
  2. PARACETAMOL [Concomitant]
  3. IBUPROFEN [Concomitant]

REACTIONS (1)
  - EPISTAXIS [None]
